FAERS Safety Report 7705529-6 (Version None)
Quarter: 2011Q3

REPORT INFORMATION
  Report Type: 
  Country: None (occurrence: None)
  Receive Date: 20110824
  Receipt Date: 20110811
  Transmission Date: 20111222
  Serious: Yes (Hospitalization, Other)
  Sender: FDA-Public Use
  Company Number: US-ELI_LILLY_AND_COMPANY-US201108004357

PATIENT
  Age: 66 Year
  Sex: Female

DRUGS (4)
  1. VITAMIN D [Suspect]
  2. FORTEO [Suspect]
     Indication: OSTEOPOROSIS
     Dosage: 20 UG, UNK
     Dates: start: 20100801, end: 20110805
  3. MULTI-VITAMIN [Concomitant]
  4. CALCIUM CARBONATE [Concomitant]

REACTIONS (1)
  - HAEMANGIOBLASTOMA [None]
